FAERS Safety Report 7546932-7 (Version None)
Quarter: 2011Q2

REPORT INFORMATION
  Report Type: 
  Country: None (occurrence: None)
  Receive Date: 20110614
  Receipt Date: 20110608
  Transmission Date: 20111010
  Serious: Yes (Hospitalization)
  Sender: FDA-Public Use
  Company Number: NL-MEDIMMUNE-MEDI-0012415

PATIENT
  Sex: Male
  Weight: 5.2 kg

DRUGS (3)
  1. SYNAGIS [Suspect]
     Route: 030
     Dates: start: 20101111, end: 20110105
  2. SYNAGIS [Suspect]
     Route: 030
     Dates: start: 20110201, end: 20110201
  3. ACETYLSALICYLATE CALCIUM [Concomitant]
     Dates: start: 20100101

REACTIONS (2)
  - COUGH [None]
  - DYSPNOEA [None]
